FAERS Safety Report 5070393-3 (Version None)
Quarter: 2006Q3

REPORT INFORMATION
  Report Type: 
  Country: None (occurrence: None)
  Receive Date: 20060802
  Receipt Date: 20060720
  Transmission Date: 20061208
  Serious: Yes (Death, Hospitalization)
  Sender: FDA-Public Use
  Company Number: 2006-BP-08378RO

PATIENT
  Age: 63 Year
  Sex: Male

DRUGS (4)
  1. CYCLOPHOSPHAMIDE TABLET USP, 25 MG (CYCLOPHOSPHAMIDE) [Suspect]
     Indication: DISEASE RECURRENCE
     Dosage: 100 MG
     Dates: start: 20020501
  2. CYCLOPHOSPHAMIDE TABLET USP, 25 MG (CYCLOPHOSPHAMIDE) [Suspect]
     Indication: RENAL DISORDER
     Dosage: 100 MG
     Dates: start: 20020501
  3. PREDNISONE TAB [Suspect]
     Indication: DISEASE RECURRENCE
     Dosage: 25 MG
     Dates: start: 20020501
  4. PREDNISONE TAB [Suspect]
     Indication: RENAL DISORDER
     Dosage: 25 MG
     Dates: start: 20020501

REACTIONS (34)
  - ANAEMIA [None]
  - BENIGN PROSTATIC HYPERPLASIA [None]
  - CELL-MEDIATED IMMUNE DEFICIENCY [None]
  - CHOLESTASIS [None]
  - COAGULOPATHY [None]
  - CYTOMEGALOVIRUS ANTIGEN POSITIVE [None]
  - DISEASE RECURRENCE [None]
  - DYSPNOEA [None]
  - FOCAL GLOMERULOSCLEROSIS [None]
  - GASTRITIS HAEMORRHAGIC [None]
  - HAEMODIALYSIS [None]
  - HEPATIC CIRRHOSIS [None]
  - HEPATIC FAILURE [None]
  - HEPATIC NECROSIS [None]
  - HEPATIC STEATOSIS [None]
  - HEPATITIS B [None]
  - HEPATOMEGALY [None]
  - HYPERPYREXIA [None]
  - INTERNATIONAL NORMALISED RATIO INCREASED [None]
  - INTERSTITIAL LUNG DISEASE [None]
  - LYMPHOPENIA [None]
  - MULTI-ORGAN FAILURE [None]
  - MYOCARDIAL FIBROSIS [None]
  - OEDEMA [None]
  - PANCYTOPENIA [None]
  - PNEUMONIA [None]
  - PROTHROMBIN TIME PROLONGED [None]
  - PULMONARY OEDEMA [None]
  - RENAL DISORDER [None]
  - RENAL FAILURE [None]
  - RENAL ISCHAEMIA [None]
  - RESPIRATORY FAILURE [None]
  - SPLENIC HAEMORRHAGE [None]
  - TRANSAMINASES ABNORMAL [None]
